FAERS Safety Report 7808523-X (Version None)
Quarter: 2011Q4

REPORT INFORMATION
  Report Type: 
  Country: None (occurrence: None)
  Receive Date: 20111012
  Receipt Date: 20110224
  Transmission Date: 20120403
  Serious: No
  Sender: FDA-Public Use
  Company Number: US-MYLANLABS-2011S1003932

PATIENT
  Age: 44 Year
  Sex: Female

DRUGS (8)
  1. VYTORIN [Concomitant]
  2. AMARYL [Concomitant]
  3. JANUVIA [Concomitant]
  4. LOPRESSOR [Concomitant]
  5. POTASSIUM [Concomitant]
  6. ALLEGRA [Concomitant]
  7. METFORMIN HCL [Suspect]
     Indication: DIABETES MELLITUS
     Route: 048
     Dates: start: 20110127, end: 20110201
  8. NEXIUM [Concomitant]

REACTIONS (4)
  - MALAISE [None]
  - DRUG INEFFECTIVE [None]
  - MEDICATION RESIDUE [None]
  - BLOOD GLUCOSE INCREASED [None]
